FAERS Safety Report 6940250-3 (Version None)
Quarter: 2010Q3

REPORT INFORMATION
  Report Type: 
  Country: None (occurrence: None)
  Receive Date: 20100820
  Receipt Date: 20100809
  Transmission Date: 20110219
  Serious: Yes (Hospitalization)
  Sender: FDA-Public Use
  Company Number: AUR-APL-2010-02015

PATIENT
  Age: 79 Year
  Sex: Male

DRUGS (5)
  1. SIMVASTATIN [Suspect]
     Indication: CORONARY ARTERY DISEASE
     Dosage: D/C'D; RECHALLENGED
  2. SIMVASTATIN [Suspect]
     Indication: HYPERTENSION
     Dosage: D/C'D; RECHALLENGED
  3. RAMIPRIL [Concomitant]
  4. ATENOLOL [Concomitant]
  5. ACETYLSALICYLIC ACID [Concomitant]

REACTIONS (4)
  - SKIN HYPERPIGMENTATION [None]
  - SKIN TEST POSITIVE [None]
  - URTICARIA [None]
  - VASCULITIS NECROTISING [None]
